FAERS Safety Report 26016451 (Version 1)
Quarter: 2025Q4

REPORT INFORMATION
  Report Type: Spontaneous
  Country: US (occurrence: None)
  Receive Date: 20251110
  Receipt Date: 20251110
  Transmission Date: 20260117
  Serious: Yes (Hospitalization)
  Sender: ENDO
  Company Number: US-ENDO USA, INC.-2025-002231

PATIENT
  Age: 42 Year
  Sex: Male

DRUGS (2)
  1. FLUPHENAZINE DECANOATE [Suspect]
     Active Substance: FLUPHENAZINE DECANOATE
     Indication: Product used for unknown indication
     Dosage: 125 MILLIGRAM, SINGLE (TENFOLD DOSE)
  2. FLUPHENAZINE DECANOATE [Suspect]
     Active Substance: FLUPHENAZINE DECANOATE
     Dosage: 12.5 MILLIGRAM, ONCE EVERY 4WKS

REACTIONS (2)
  - Accidental overdose [Recovered/Resolved]
  - Product administration error [Recovered/Resolved]
